FAERS Safety Report 22724435 (Version 3)
Quarter: 2024Q4

REPORT INFORMATION
  Report Type: Report from Study
  Country: US (occurrence: US)
  Receive Date: 20230719
  Receipt Date: 20241022
  Transmission Date: 20250114
  Serious: Yes (Other)
  Sender: NOVARTIS
  Company Number: US-002147023-NVSC2023US159484

PATIENT
  Age: 80 Year
  Sex: Male

DRUGS (3)
  1. ENTRESTO [Suspect]
     Active Substance: SACUBITRIL\VALSARTAN
     Indication: Atrial fibrillation
     Dosage: 1 DOSAGE FORM, BID
     Route: 065
     Dates: start: 20220203
  2. ENTRESTO [Suspect]
     Active Substance: SACUBITRIL\VALSARTAN
     Indication: Cardiac failure congestive
     Dosage: 1 DOSAGE FORM, BID
     Route: 048
     Dates: start: 202211
  3. FARXIGA [Concomitant]
     Active Substance: DAPAGLIFLOZIN PROPANEDIOL
     Indication: Product used for unknown indication
     Dosage: UNK
     Route: 065

REACTIONS (16)
  - Pericardial effusion [Unknown]
  - Cardiac dysfunction [Unknown]
  - Pneumonia [Unknown]
  - Blindness [Unknown]
  - Hypotension [Unknown]
  - Dizziness [Unknown]
  - Decreased immune responsiveness [Unknown]
  - Renal disorder [Unknown]
  - Liver disorder [Unknown]
  - Swelling face [Unknown]
  - Pleural effusion [Unknown]
  - Blood glucose increased [Unknown]
  - Hypertension [Unknown]
  - Fatigue [Unknown]
  - Muscle spasms [Unknown]
  - Joint swelling [Unknown]

NARRATIVE: CASE EVENT DATE: 20221101
